FAERS Safety Report 15745622 (Version 2)
Quarter: 2018Q4

REPORT INFORMATION
  Report Type: Spontaneous
  Country: ZA (occurrence: ZA)
  Receive Date: 20181220
  Receipt Date: 20181226
  Transmission Date: 20190205
  Serious: Yes (Hospitalization, Disabling)
  Sender: FDA-Public Use
  Company Number: ZA-B.I. PHARMACEUTICALS,INC./RIDGEFIELD-2018-BI-060314

PATIENT
  Sex: Male
  Weight: 82 kg

DRUGS (4)
  1. JARDIANCE [Suspect]
     Active Substance: EMPAGLIFLOZIN
     Route: 048
     Dates: end: 20181206
  2. JARDIANCE [Suspect]
     Active Substance: EMPAGLIFLOZIN
     Indication: TYPE 2 DIABETES MELLITUS
     Route: 048
  3. LANTUS [Concomitant]
     Active Substance: INSULIN GLARGINE
     Indication: PRODUCT USED FOR UNKNOWN INDICATION
     Route: 058
  4. GALVUS MET [Concomitant]
     Active Substance: METFORMIN HYDROCHLORIDE\VILDAGLIPTIN
     Indication: PRODUCT USED FOR UNKNOWN INDICATION
     Route: 065

REACTIONS (6)
  - Cellulitis [Recovered/Resolved]
  - Renal impairment [Recovered/Resolved]
  - Staphylococcal infection [Recovered/Resolved]
  - Sepsis [Recovered/Resolved]
  - Limb amputation [Recovered/Resolved]
  - Necrotising fasciitis [Recovered/Resolved]

NARRATIVE: CASE EVENT DATE: 20181205
